FAERS Safety Report 16715287 (Version 1)
Quarter: 2019Q3

REPORT INFORMATION
  Report Type: Spontaneous
  Country: GB (occurrence: GB)
  Receive Date: 20190819
  Receipt Date: 20190819
  Transmission Date: 20191005
  Serious: Yes (Death)
  Sender: FDA-Public Use
  Company Number: GB-TEVA-213501ISR

PATIENT
  Age: 89 Year
  Sex: Female

DRUGS (18)
  1. ROPINIROLE. [Suspect]
     Active Substance: ROPINIROLE
     Indication: PARKINSON^S DISEASE
     Dosage: 9 MILLIGRAM DAILY;
     Route: 048
  2. RISPERDAL [Suspect]
     Active Substance: RISPERIDONE
     Indication: PARKINSON^S DISEASE
     Route: 048
  3. ACETYLSALICYLIC ACID [Concomitant]
     Active Substance: ASPIRIN
  4. ROPINIROLE. [Suspect]
     Active Substance: ROPINIROLE
     Dosage: 9 MILLIGRAM DAILY;
     Route: 048
  5. ASPIRIN. [Concomitant]
     Active Substance: ASPIRIN
  6. LACTOSE [Concomitant]
     Active Substance: LACTOSE
  7. LEVODOPA [Concomitant]
     Active Substance: LEVODOPA
     Indication: PARKINSON^S DISEASE
  8. SPARTIENE SULFATE [Concomitant]
  9. AMOXICILLIN TRIHYDRATE [Concomitant]
     Active Substance: AMOXICILLIN
  10. FUROSEMIDE. [Concomitant]
     Active Substance: FUROSEMIDE
  11. DIGOXIN. [Concomitant]
     Active Substance: DIGOXIN
  12. FRUSEMIDE [Concomitant]
     Active Substance: FUROSEMIDE
  13. SINEMET [Concomitant]
     Active Substance: CARBIDOPA\LEVODOPA
  14. BISOPROLOL [Concomitant]
     Active Substance: BISOPROLOL
  15. LACTULOSE. [Concomitant]
     Active Substance: LACTULOSE
  16. FORTISIP [Concomitant]
     Active Substance: CARBOHYDRATES\FATTY ACIDS\MINERALS\PROTEIN\VITAMINS
  17. CARBIMAZOLE [Concomitant]
     Active Substance: CARBIMAZOLE
  18. CARBIDOPA. [Concomitant]
     Active Substance: CARBIDOPA
     Indication: PARKINSON^S DISEASE

REACTIONS (3)
  - Death [Fatal]
  - Off label use [Unknown]
  - Wrong product administered [Unknown]
